FAERS Safety Report 13680958 (Version 5)
Quarter: 2019Q1

REPORT INFORMATION
  Report Type: Spontaneous
  Country: CA (occurrence: CA)
  Receive Date: 20170623
  Receipt Date: 20190305
  Transmission Date: 20190417
  Serious: Yes (Hospitalization, Other)
  Sender: FDA-Public Use
  Company Number: CA-CONCORDIA PHARMACEUTICALS INC.-GSH201706-003601

PATIENT
  Age: 56 Year
  Sex: Female

DRUGS (40)
  1. LEFLUNOMIDE. [Suspect]
     Active Substance: LEFLUNOMIDE
     Indication: RHEUMATOID ARTHRITIS
     Route: 048
     Dates: start: 201401, end: 201407
  2. HUMIRA [Suspect]
     Active Substance: ADALIMUMAB
     Indication: RHEUMATOID ARTHRITIS
     Route: 058
     Dates: start: 20080118, end: 2010
  3. HUMIRA [Suspect]
     Active Substance: ADALIMUMAB
     Dates: start: 20081118, end: 20090616
  4. METHOTREXATE. [Suspect]
     Active Substance: METHOTREXATE
     Route: 058
     Dates: start: 201105
  5. RITUXAN [Suspect]
     Active Substance: RITUXIMAB
     Route: 042
     Dates: start: 200908, end: 201007
  6. RITUXAN [Suspect]
     Active Substance: RITUXIMAB
     Route: 065
     Dates: start: 201407, end: 201507
  7. MYOCHRYSINE [Suspect]
     Active Substance: GOLD SODIUM THIOMALATE
     Route: 030
  8. ACTEMRA [Suspect]
     Active Substance: TOCILIZUMAB
     Route: 065
  9. ENBREL [Suspect]
     Active Substance: ETANERCEPT
     Route: 065
     Dates: start: 20080618, end: 20081112
  10. ENBREL [Suspect]
     Active Substance: ETANERCEPT
     Route: 065
     Dates: end: 2011
  11. ORENCIA [Suspect]
     Active Substance: ABATACEPT
     Indication: RHEUMATOID ARTHRITIS
     Route: 065
     Dates: start: 201206, end: 201302
  12. MYOCHRYSINE [Suspect]
     Active Substance: GOLD SODIUM THIOMALATE
     Indication: RHEUMATOID ARTHRITIS
     Route: 030
     Dates: start: 1988
  13. METHOTREXATE SODIUM. [Suspect]
     Active Substance: METHOTREXATE SODIUM
     Indication: RHEUMATOID ARTHRITIS
     Route: 065
  14. ALENDRONATE SODIUM. [Suspect]
     Active Substance: ALENDRONATE SODIUM
     Indication: RHEUMATOID ARTHRITIS
     Route: 065
     Dates: start: 201401
  15. METHOTREXATE. [Suspect]
     Active Substance: METHOTREXATE
     Route: 058
     Dates: start: 1989
  16. METHOTREXATE. [Suspect]
     Active Substance: METHOTREXATE
     Route: 065
  17. METHOTREXATE. [Suspect]
     Active Substance: METHOTREXATE
     Route: 058
     Dates: start: 201508
  18. LEFLUNOMIDE. [Suspect]
     Active Substance: LEFLUNOMIDE
     Route: 048
     Dates: start: 2005, end: 2008
  19. ACTEMRA [Suspect]
     Active Substance: TOCILIZUMAB
     Indication: RHEUMATOID ARTHRITIS
     Route: 065
     Dates: end: 201204
  20. ACTEMRA [Suspect]
     Active Substance: TOCILIZUMAB
     Route: 065
     Dates: start: 201010
  21. METHOTREXATE. [Suspect]
     Active Substance: METHOTREXATE
     Route: 058
     Dates: start: 201501
  22. RITUXAN [Suspect]
     Active Substance: RITUXIMAB
     Route: 042
  23. CICLOSPORIN [Concomitant]
     Active Substance: CYCLOSPORINE
     Dates: end: 20160420
  24. PREDNISONE. [Concomitant]
     Active Substance: PREDNISONE
  25. METHOTREXATE. [Suspect]
     Active Substance: METHOTREXATE
     Route: 058
     Dates: start: 200806
  26. ORENCIA [Suspect]
     Active Substance: ABATACEPT
     Route: 065
     Dates: start: 2013
  27. REMICADE [Suspect]
     Active Substance: INFLIXIMAB
     Indication: RHEUMATOID ARTHRITIS
     Route: 042
     Dates: start: 2011, end: 2012
  28. SULFASALAZINE. [Suspect]
     Active Substance: SULFASALAZINE
     Indication: RHEUMATOID ARTHRITIS
     Route: 065
  29. ALENDRONATE SODIUM. [Suspect]
     Active Substance: ALENDRONATE SODIUM
     Route: 065
  30. METHOTREXATE. [Suspect]
     Active Substance: METHOTREXATE
     Indication: RHEUMATOID ARTHRITIS
     Route: 048
     Dates: start: 200806
  31. HYDROXYCHLOROQUINE [Suspect]
     Active Substance: HYDROXYCHLOROQUINE
     Indication: RHEUMATOID ARTHRITIS
     Route: 048
  32. ENBREL [Suspect]
     Active Substance: ETANERCEPT
     Indication: RHEUMATOID ARTHRITIS
     Route: 065
     Dates: start: 20080619, end: 20081211
  33. METHOTREXATE. [Suspect]
     Active Substance: METHOTREXATE
     Route: 058
     Dates: start: 200908
  34. RITUXAN [Suspect]
     Active Substance: RITUXIMAB
     Indication: RHEUMATOID ARTHRITIS
     Route: 042
     Dates: start: 2015, end: 2015
  35. ALENDRONIC ACID [Suspect]
     Active Substance: ALENDRONIC ACID
     Indication: PRODUCT USED FOR UNKNOWN INDICATION
     Route: 065
  36. PREDNISOLONE. [Concomitant]
     Active Substance: PREDNISOLONE
  37. XELJANZ [Concomitant]
     Active Substance: TOFACITINIB CITRATE
  38. CODEINE [Suspect]
     Active Substance: CODEINE
     Indication: RHEUMATOID ARTHRITIS
     Route: 065
  39. METHOTREXATE. [Suspect]
     Active Substance: METHOTREXATE
     Route: 065
     Dates: start: 201202
  40. PREDNISONE. [Concomitant]
     Active Substance: PREDNISONE
     Dates: start: 201303, end: 201401

REACTIONS (33)
  - Aspartate aminotransferase increased [Unknown]
  - Rheumatoid nodule [Unknown]
  - Erythema [Unknown]
  - Drug ineffective [Unknown]
  - Rheumatoid arthritis [Not Recovered/Not Resolved]
  - Hypersensitivity [Not Recovered/Not Resolved]
  - Red blood cell sedimentation rate increased [Not Recovered/Not Resolved]
  - Skin necrosis [Unknown]
  - Panniculitis [Unknown]
  - Contraindicated product administered [Unknown]
  - Alanine aminotransferase increased [Unknown]
  - Inflammation [Unknown]
  - Granuloma skin [Unknown]
  - Rash pruritic [Not Recovered/Not Resolved]
  - Product use issue [Unknown]
  - Infusion related reaction [Not Recovered/Not Resolved]
  - Skin ulcer [Not Recovered/Not Resolved]
  - Ulcer [Unknown]
  - Arthralgia [Not Recovered/Not Resolved]
  - Rash [Not Recovered/Not Resolved]
  - Drug hypersensitivity [Not Recovered/Not Resolved]
  - Hypercalcaemia [Recovered/Resolved]
  - Pain [Not Recovered/Not Resolved]
  - Pruritus [Not Recovered/Not Resolved]
  - Drug tolerance decreased [Unknown]
  - Therapeutic response decreased [Unknown]
  - Blood parathyroid hormone decreased [Recovered/Resolved]
  - Drug eruption [Not Recovered/Not Resolved]
  - C-reactive protein increased [Unknown]
  - Basal cell carcinoma [Unknown]
  - Peripheral swelling [Not Recovered/Not Resolved]
  - Loss of personal independence in daily activities [Unknown]
  - Musculoskeletal stiffness [Not Recovered/Not Resolved]

NARRATIVE: CASE EVENT DATE: 201303
